FAERS Safety Report 6328212-0 (Version None)
Quarter: 2009Q3

REPORT INFORMATION
  Report Type: 
  Country: None (occurrence: None)
  Receive Date: 20090825
  Receipt Date: 20081205
  Transmission Date: 20100115
  Serious: No
  Sender: FDA-Public Use
  Company Number: US-ABBOTT-08P-163-0491397-00

PATIENT
  Sex: Female
  Weight: 99.88 kg

DRUGS (15)
  1. SYNTHROID [Suspect]
     Indication: NODULE
     Dates: start: 19980101
  2. EFSEXOR XL [Concomitant]
     Indication: ANTIDEPRESSANT THERAPY
     Dates: start: 20050101
  3. TEGRETOL-XR [Concomitant]
     Indication: AFFECTIVE DISORDER
     Dates: start: 20050101
  4. VALTREX [Concomitant]
     Indication: HERPES VIRUS INFECTION
  5. ASPIRIN [Concomitant]
     Indication: CARDIAC DISORDER
     Dates: start: 20060101
  6. CENTRUM SILVER [Concomitant]
     Indication: VITAMIN SUPPLEMENTATION
     Dates: start: 19980101
  7. FISH OIL OMEGA 3 [Concomitant]
     Indication: CARDIOVASCULAR DISORDER
     Dates: start: 20060101
  8. BEELIVE [Concomitant]
     Indication: ELEVATED MOOD
     Dates: start: 19960101
  9. BEELIVE [Concomitant]
     Indication: SKIN DISORDER
  10. CALCIUM CITRATE WITH VITAMIN D [Concomitant]
     Indication: MINERAL SUPPLEMENTATION
     Dates: start: 20081001
  11. FIBERCON [Concomitant]
     Indication: BOWEL MOVEMENT IRREGULARITY
     Dates: start: 20040101
  12. GARLIQUE [Concomitant]
     Indication: BLOOD CHOLESTEROL
  13. GARLIQUE [Concomitant]
     Indication: BLOOD PRESSURE
  14. GARLIQUE [Concomitant]
     Indication: CARDIOVASCULAR DISORDER
  15. ATIVAN [Concomitant]
     Indication: ANXIETY
     Dosage: PRN

REACTIONS (1)
  - THYROID NEOPLASM [None]
